FAERS Safety Report 8576198-0 (Version None)
Quarter: 2012Q3

REPORT INFORMATION
  Report Type: 
  Country: None (occurrence: None)
  Receive Date: 20120724
  Receipt Date: 20120709
  Transmission Date: 20120928
  Serious: Yes (Other)
  Sender: FDA-Public Use
  Company Number: 2012-01064

PATIENT
  Age: 9 Year
  Sex: Male
  Weight: 20 kg

DRUGS (5)
  1. STREPTOMYCIN [Suspect]
     Indication: TUBERCULOSIS
  2. PYRAZINAMIDE [Suspect]
     Indication: TUBERCULOSIS
  3. RIFAMPICIN [Suspect]
     Indication: TUBERCULOSIS
  4. ISONIAZID [Suspect]
     Indication: TUBERCULOSIS
  5. ETHAMBUTOL HYDROCHLORIDE [Suspect]
     Indication: TUBERCULOSIS

REACTIONS (9)
  - WEIGHT GAIN POOR [None]
  - DRUG RESISTANCE [None]
  - PYREXIA [None]
  - DECREASED APPETITE [None]
  - HEPATOMEGALY [None]
  - LYMPHADENOPATHY [None]
  - DRUG INEFFECTIVE [None]
  - COUGH [None]
  - ABDOMINAL PAIN [None]
